FAERS Safety Report 17703219 (Version 1)
Quarter: 2020Q2

REPORT INFORMATION
  Report Type: Spontaneous
  Country: US (occurrence: US)
  Receive Date: 20200424
  Receipt Date: 20200424
  Transmission Date: 20200714
  Serious: No
  Sender: FDA-Public Use
  Company Number: US-GLAXOSMITHKLINE-US2020066998

PATIENT
  Age: 18 Year
  Sex: Female

DRUGS (1)
  1. ARNUITY ELLIPTA [Suspect]
     Active Substance: FLUTICASONE FUROATE
     Indication: PRODUCT USED FOR UNKNOWN INDICATION
     Dosage: 2 PUFF(S), BID
     Route: 065
     Dates: start: 20200408, end: 20200411

REACTIONS (10)
  - Weight decreased [Unknown]
  - Oropharyngeal discomfort [Unknown]
  - Eating disorder symptom [Unknown]
  - Chest pain [Unknown]
  - Burn oesophageal [Unknown]
  - Diarrhoea [Not Recovered/Not Resolved]
  - Dyspepsia [Unknown]
  - Throat irritation [Unknown]
  - Foaming at mouth [Unknown]
  - Anxiety [Not Recovered/Not Resolved]

NARRATIVE: CASE EVENT DATE: 20200409
